FAERS Safety Report 21909584 (Version 1)
Quarter: 2023Q1

REPORT INFORMATION
  Report Type: Spontaneous
  Country: US (occurrence: US)
  Receive Date: 20230125
  Receipt Date: 20230125
  Transmission Date: 20230417
  Serious: Yes (Hospitalization, Other)
  Sender: FDA-Public Use
  Company Number: US-009507513-1301USA006573

PATIENT
  Sex: Female
  Weight: 53.515 kg

DRUGS (4)
  1. FOSAMAX [Suspect]
     Active Substance: ALENDRONATE SODIUM
     Indication: Osteopenia
     Dosage: 70 MG, UNK
     Route: 048
     Dates: start: 20010530, end: 20051005
  2. OMEGA-3-ACID ETHYL ESTERS [Concomitant]
     Active Substance: OMEGA-3-ACID ETHYL ESTERS
     Dosage: 1000 MG, QD
     Route: 048
     Dates: start: 2000
  3. VITAMINS NOS [Concomitant]
     Active Substance: VITAMINS
     Dosage: 2000 IU, QD
     Dates: start: 2000
  4. CALCIUM CARBONATE [Concomitant]
     Active Substance: CALCIUM CARBONATE
     Dosage: 1200 MG, BID
     Dates: start: 2000

REACTIONS (31)
  - Fracture delayed union [Recovered/Resolved]
  - Intramedullary rod insertion [Unknown]
  - Open reduction of fracture [Unknown]
  - Bone graft [Unknown]
  - Intramedullary rod insertion [Unknown]
  - Medical device removal [Unknown]
  - Femur fracture [Recovered/Resolved]
  - Medical device pain [Unknown]
  - Device failure [Unknown]
  - Medical device pain [Unknown]
  - Medical device removal [Unknown]
  - Medical device removal [Unknown]
  - Hypertension [Unknown]
  - Blood cholesterol increased [Unknown]
  - Low turnover osteopathy [Unknown]
  - Depression [Unknown]
  - Osteoporosis [Unknown]
  - Fall [Unknown]
  - Foot deformity [Unknown]
  - Foot operation [Unknown]
  - Foot operation [Unknown]
  - Mitral valve prolapse [Unknown]
  - Foot fracture [Unknown]
  - Foot fracture [Unknown]
  - Arthritis [Unknown]
  - Fibrocystic breast disease [Unknown]
  - Bunion operation [Unknown]
  - Joint dislocation [Unknown]
  - Exostosis [Unknown]
  - Foot operation [Unknown]
  - Humerus fracture [Unknown]

NARRATIVE: CASE EVENT DATE: 20010101
